FAERS Safety Report 8793620 (Version 1)
Quarter: 2012Q4

REPORT INFORMATION
  Report Type: 
  Country: FR (occurrence: FR)
  Receive Date: 20120917
  Receipt Date: 20120917
  Transmission Date: 20130627
  Serious: Yes (Hospitalization)
  Sender: FDA-Public Use
  Company Number: FR-GLAXOSMITHKLINE-B0830239A

PATIENT
  Age: 77 None
  Sex: Female

DRUGS (4)
  1. PAROXETINE [Suspect]
     Indication: PRODUCT USED FOR UNKNOWN INDICATION
     Route: 048
     Dates: end: 20111003
  2. SPIRONOLACTONE [Suspect]
     Indication: PRODUCT USED FOR UNKNOWN INDICATION
     Route: 048
     Dates: end: 20111003
  3. VASTAREL [Suspect]
     Indication: PRODUCT USED FOR UNKNOWN INDICATION
     Route: 048
     Dates: end: 20111003
  4. PREVISCAN [Concomitant]
     Indication: PRODUCT USED FOR UNKNOWN INDICATION
     Route: 065
     Dates: end: 20111003

REACTIONS (5)
  - Hyponatraemia [Recovered/Resolved]
  - Fall [Recovered/Resolved]
  - Upper limb fracture [Recovered/Resolved]
  - Haematoma [Recovered/Resolved]
  - Vitamin D deficiency [Unknown]
